FAERS Safety Report 18844980 (Version 1)
Quarter: 2021Q1

REPORT INFORMATION
  Report Type: Spontaneous
  Country: US (occurrence: US)
  Receive Date: 20210203
  Receipt Date: 20210203
  Transmission Date: 20210419
  Serious: Yes (Other)
  Sender: FDA-Public Use
  Company Number: None

PATIENT
  Age: 76 Year
  Sex: Female
  Weight: 52.84 kg

DRUGS (15)
  1. LEVOTHYROXINE. [Concomitant]
     Active Substance: LEVOTHYROXINE
  2. IBANDRONATE SODIUM 150 MG TABLETS [Suspect]
     Active Substance: IBANDRONATE SODIUM
     Indication: OSTEOPOROSIS
     Dosage: ?          QUANTITY:1 DF DOSAGE FORM;?
     Route: 048
     Dates: start: 20201014, end: 20201111
  3. TRET [Concomitant]
  4. BETAMETHASON DIPROPIONATE [Concomitant]
  5. BIOTIN [Concomitant]
     Active Substance: BIOTIN
  6. VITAMIN C [Concomitant]
     Active Substance: ASCORBIC ACID
  7. ROSUVASTATIN. [Concomitant]
     Active Substance: ROSUVASTATIN
  8. COENZYME Q10 [Concomitant]
     Active Substance: DIETARY SUPPLEMENT\UBIDECARENONE
  9. TUMERIC [Concomitant]
     Active Substance: HERBALS\TURMERIC
  10. VITAMIN B12 [Concomitant]
     Active Substance: CYANOCOBALAMIN
  11. LISINOPRIL. [Concomitant]
     Active Substance: LISINOPRIL
  12. SR VITAMIN MULTI [Concomitant]
  13. KEFIR [Concomitant]
  14. FISH OIL [Concomitant]
     Active Substance: FISH OIL
  15. CALCIUM+D+MINERALS [Concomitant]

REACTIONS (2)
  - Depression [None]
  - COVID-19 [None]
